FAERS Safety Report 7411865-3 (Version None)
Quarter: 2011Q2

REPORT INFORMATION
  Report Type: 
  Country: None (occurrence: None)
  Receive Date: 20110405
  Receipt Date: 20110323
  Transmission Date: 20111010
  Serious: Yes (Life-Threatening, Hospitalization, Other)
  Sender: FDA-Public Use
  Company Number: 2011MA002192

PATIENT
  Age: 58 Year
  Sex: Male

DRUGS (10)
  1. MIRTAZAPINE [Suspect]
     Indication: PRODUCT USED FOR UNKNOWN INDICATION
     Dates: start: 20090103
  2. SERTRALINE HYDROCHLORIDE [Suspect]
     Indication: PRODUCT USED FOR UNKNOWN INDICATION
     Dates: start: 20090103
  3. ZOLPIDEM TARTRATE [Suspect]
     Indication: PRODUCT USED FOR UNKNOWN INDICATION
     Dates: start: 20090103
  4. MIRTAZAPINE [Suspect]
     Indication: PRODUCT USED FOR UNKNOWN INDICATION
     Dates: start: 20090103
  5. MIRTAZAPINE [Suspect]
     Indication: PRODUCT USED FOR UNKNOWN INDICATION
     Dates: start: 20090103
  6. DIAZEPAM [Suspect]
     Indication: ANXIETY
     Dosage: 5 MG; QID;
     Dates: start: 20090103
  7. OXAZEPAM [Suspect]
     Indication: PRODUCT USED FOR UNKNOWN INDICATION
  8. PROPAVAN (PROPIOMAZINE MALEATE) [Suspect]
     Indication: PRODUCT USED FOR UNKNOWN INDICATION
     Dates: start: 20090103
  9. PREDNISOLONE [Suspect]
     Indication: TINNITUS
     Dosage: 60 MG; QD;
     Dates: start: 20081215
  10. SERTRALINE HYDROCHLORIDE [Suspect]
     Indication: PRODUCT USED FOR UNKNOWN INDICATION
     Dates: start: 20090103

REACTIONS (14)
  - DIARRHOEA [None]
  - ANXIETY [None]
  - SUICIDE ATTEMPT [None]
  - HALLUCINATION [None]
  - FEAR [None]
  - WEIGHT DECREASED [None]
  - FATIGUE [None]
  - HAEMATOMA [None]
  - INSOMNIA [None]
  - TREMOR [None]
  - MULTIPLE FRACTURES [None]
  - SELF INJURIOUS BEHAVIOUR [None]
  - PNEUMOTHORAX [None]
  - SLEEP DISORDER [None]
